FAERS Safety Report 23105250 (Version 1)
Quarter: 2023Q4

REPORT INFORMATION
  Report Type: Spontaneous
  Country: US (occurrence: None)
  Receive Date: 20231023
  Receipt Date: 20231023
  Transmission Date: 20240109
  Serious: Yes (Hospitalization)
  Sender: FDA-Public Use
  Company Number: None

PATIENT
  Age: 73 Year
  Sex: Male
  Weight: 93.4 kg

DRUGS (1)
  1. EVANS BLUE [Suspect]
     Active Substance: EVANS BLUE

REACTIONS (2)
  - Anaphylactic reaction [None]
  - Pruritus [None]
